FAERS Safety Report 4608804-7 (Version None)
Quarter: 2005Q1

REPORT INFORMATION
  Report Type: 
  Country: None (occurrence: None)
  Receive Date: 20050311
  Receipt Date: 20050224
  Transmission Date: 20050727
  Serious: Yes (Hospitalization)
  Sender: FDA-Public Use
  Company Number: 430003E05GBR

PATIENT
  Sex: Female

DRUGS (1)
  1. NOVANTRONE [Suspect]
     Indication: B-CELL LYMPHOMA
     Dates: end: 20050131

REACTIONS (1)
  - NEUTROPENIC SEPSIS [None]
